FAERS Safety Report 22207743 (Version 5)
Quarter: 2023Q2

REPORT INFORMATION
  Report Type: Spontaneous
  Country: US (occurrence: US)
  Receive Date: 20230413
  Receipt Date: 20230529
  Transmission Date: 20230722
  Serious: Yes (Other)
  Sender: FDA-Public Use
  Company Number: US-PFIZER INC-202101458440

PATIENT
  Age: 64 Year
  Sex: Male
  Weight: 75.7 kg

DRUGS (2)
  1. XELJANZ [Suspect]
     Active Substance: TOFACITINIB CITRATE
     Indication: Rheumatoid arthritis
     Dosage: UNK
  2. LANTUS [Concomitant]
     Active Substance: INSULIN GLARGINE
     Dosage: UNK

REACTIONS (5)
  - Myocardial infarction [Unknown]
  - Cardiac disorder [Unknown]
  - Hypoacusis [Unknown]
  - Blood glucose abnormal [Unknown]
  - Pain [Unknown]
